FAERS Safety Report 25190631 (Version 2)
Quarter: 2025Q2

REPORT INFORMATION
  Report Type: Spontaneous
  Country: IT (occurrence: IT)
  Receive Date: 20250411
  Receipt Date: 20250519
  Transmission Date: 20250716
  Serious: Yes (Hospitalization, Other)
  Sender: SANDOZ
  Company Number: IT-PFIZER INC-PV202400083987

PATIENT
  Age: 72 Year
  Sex: Male
  Weight: 70.023 kg

DRUGS (19)
  1. LEVOLEUCOVORIN CALCIUM [Suspect]
     Active Substance: LEVOLEUCOVORIN CALCIUM
     Indication: HER2 positive colorectal cancer
     Route: 042
     Dates: start: 20240523, end: 20240624
  2. FLUOROURACIL [Suspect]
     Active Substance: FLUOROURACIL
     Route: 040
     Dates: start: 20240523, end: 20240624
  3. FLUOROURACIL [Suspect]
     Active Substance: FLUOROURACIL
     Indication: HER2 positive colorectal cancer
     Route: 040
     Dates: start: 20240523, end: 20240618
  4. FLUOROURACIL [Suspect]
     Active Substance: FLUOROURACIL
     Route: 040
     Dates: start: 20240523, end: 20240624
  5. FLUOROURACIL [Suspect]
     Active Substance: FLUOROURACIL
     Indication: Product used for unknown indication
     Route: 065
  6. LEVOLEUCOVORIN CALCIUM [Suspect]
     Active Substance: LEVOLEUCOVORIN CALCIUM
     Dosage: 375 MG, Q2W
     Route: 042
     Dates: start: 20240523, end: 20240624
  7. LEVOLEUCOVORIN CALCIUM [Suspect]
     Active Substance: LEVOLEUCOVORIN CALCIUM
     Indication: HER2 positive colorectal cancer
     Dosage: 200 MG/M2 EVERY 2 WEEKS ON DAYS 1, 15 AND 29 OF EACH 6-WEEK CYCLE
     Route: 042
     Dates: start: 20240523, end: 20240618
  8. LOPERAMIDE [Suspect]
     Active Substance: LOPERAMIDE
     Dosage: 4 MG, BID DAY 15 THROUGH DAY 42
     Route: 065
  9. LOPERAMIDE [Suspect]
     Active Substance: LOPERAMIDE
     Indication: HER2 positive colorectal cancer
     Dosage: 4 MG, TID DAYS 1 TO 14
     Route: 048
     Dates: start: 20240523, end: 20240623
  10. OXALIPLATIN [Suspect]
     Active Substance: OXALIPLATIN
     Dosage: 158 MG, Q2W
     Route: 042
     Dates: start: 20240523, end: 20240624
  11. OXALIPLATIN [Suspect]
     Active Substance: OXALIPLATIN
     Indication: HER2 positive colorectal cancer
     Dosage: 85 MG/M2 EVERY 2 WEEKS ON DAYS 1, 15 AND 29 OF EACH 6-WEEK (42-DAY) CYCLE
     Route: 042
     Dates: start: 20240523, end: 20240618
  12. OXALIPLATIN [Suspect]
     Active Substance: OXALIPLATIN
     Route: 065
  13. TRASTUZUMAB [Suspect]
     Active Substance: TRASTUZUMAB
     Dosage: 560 MG, QD
     Route: 065
     Dates: start: 20240523, end: 20240624
  14. TRASTUZUMAB [Suspect]
     Active Substance: TRASTUZUMAB
     Indication: HER2 positive colorectal cancer
     Dosage: 8 MG/KG, Q3W SINGLE LOADING DOSE 8 MG/KG IV ON C1 D1
     Route: 042
     Dates: start: 20240523, end: 20240523
  15. TUCATINIB [Suspect]
     Active Substance: TUCATINIB
     Route: 065
  16. TUCATINIB [Suspect]
     Active Substance: TUCATINIB
     Indication: HER2 positive colorectal cancer
     Dosage: 300 MG, BID
     Route: 048
     Dates: start: 20240523, end: 20240623
  17. TUCATINIB [Suspect]
     Active Substance: TUCATINIB
     Dosage: 8 MG/KG Q3W SINGLE LOADING DOSE 8 MG/KG IV ON C1 D1
     Route: 042
  18. EMPAGLIFLOZIN [Concomitant]
     Active Substance: EMPAGLIFLOZIN
     Indication: Product used for unknown indication
     Route: 065
     Dates: start: 2014, end: 20240624
  19. METFORMIN [Concomitant]
     Active Substance: METFORMIN HYDROCHLORIDE
     Indication: Product used for unknown indication
     Route: 065
     Dates: start: 2014, end: 20240624

REACTIONS (4)
  - Blood creatinine increased [Unknown]
  - Acute kidney injury [Recovered/Resolved]
  - Nausea [Not Recovered/Not Resolved]
  - Nausea [Recovered/Resolved]

NARRATIVE: CASE EVENT DATE: 20240527
